FAERS Safety Report 5687900-X (Version None)
Quarter: 2008Q1

REPORT INFORMATION
  Report Type: 
  Country: None (occurrence: None)
  Receive Date: 20080328
  Receipt Date: 20061026
  Transmission Date: 20080703
  Serious: Yes (Other)
  Sender: FDA-Public Use
  Company Number: US-BAYER-US-2006-018971

PATIENT
  Age: 27 Year
  Sex: Female
  Weight: 64 kg

DRUGS (3)
  1. MIRENA [Suspect]
     Indication: CONTRACEPTION
     Route: 015
     Dates: start: 20050414, end: 20060901
  2. ZYRTEC [Concomitant]
  3. MINOCYCLINE HCL [Concomitant]
     Indication: ACNE

REACTIONS (1)
  - UTERINE RUPTURE [None]
